FAERS Safety Report 4759574-3 (Version None)
Quarter: 2005Q3

REPORT INFORMATION
  Report Type: 
  Country: None (occurrence: None)
  Receive Date: 20050901
  Receipt Date: 20050310
  Transmission Date: 20060218
  Serious: Yes (Other)
  Sender: FDA-Public Use
  Company Number: US-MERCK-0503USA02035

PATIENT
  Age: 48 Year
  Sex: Male
  Weight: 102 kg

DRUGS (3)
  1. VIOXX [Suspect]
     Indication: ARTHRITIS
     Route: 048
     Dates: end: 20041101
  2. ZOCOR [Concomitant]
     Indication: BLOOD CHOLESTEROL INCREASED
     Route: 065
  3. CELEBREX [Suspect]
     Route: 048
     Dates: start: 20030101

REACTIONS (4)
  - ATHEROSCLEROSIS [None]
  - CHEST PAIN [None]
  - EMOTIONAL DISTRESS [None]
  - INSOMNIA [None]
